FAERS Safety Report 14120907 (Version 2)
Quarter: 2017Q4

REPORT INFORMATION
  Report Type: Spontaneous
  Country: US (occurrence: US)
  Receive Date: 20171024
  Receipt Date: 20171108
  Transmission Date: 20180321
  Serious: Yes (Other)
  Sender: FDA-Public Use
  Company Number: US-ALLERGAN-1760447US

PATIENT
  Age: 76 Year
  Sex: Female

DRUGS (3)
  1. LINZESS [Suspect]
     Active Substance: LINACLOTIDE
     Indication: CONSTIPATION
     Dosage: 175 MG, TWO PILLS, QD
     Route: 048
     Dates: start: 20171018
  2. LINZESS [Suspect]
     Active Substance: LINACLOTIDE
     Indication: IMPAIRED GASTRIC EMPTYING
     Dosage: 175 MG, QD
     Route: 048
  3. LINZESS [Suspect]
     Active Substance: LINACLOTIDE
     Dosage: 145 MG, QD
     Route: 048

REACTIONS (7)
  - Constipation [Unknown]
  - Drug ineffective [Unknown]
  - Functional gastrointestinal disorder [Unknown]
  - Colectomy [Unknown]
  - Gastric disorder [Unknown]
  - Off label use [Unknown]
  - Drug prescribing error [Unknown]

NARRATIVE: CASE EVENT DATE: 20170717
